FAERS Safety Report 12997519 (Version 5)
Quarter: 2022Q4

REPORT INFORMATION
  Report Type: Other
  Country: CA (occurrence: None)
  Receive Date: 20161205
  Receipt Date: 20221215
  Transmission Date: 20230112
  Serious: Yes (Other)
  Sender: FDA-Public Use
  Company Number: CA-ROCHE-1342887

PATIENT
  Age: 63 Year
  Sex: Female
  Weight: 82.8 kg

DRUGS (13)
  1. RITUXAN [Suspect]
     Active Substance: RITUXIMAB
     Indication: Rheumatoid arthritis
     Dosage: PREVIOUS RITUXAN INFUSION WAS ADMINISTERED ON 08/MAR/2022.
     Route: 042
     Dates: start: 20140116, end: 20190903
  2. RITUXAN [Suspect]
     Active Substance: RITUXIMAB
     Route: 042
     Dates: start: 20140212
  3. RITUXAN [Suspect]
     Active Substance: RITUXIMAB
     Route: 042
     Dates: start: 20150120
  4. RITUXAN [Suspect]
     Active Substance: RITUXIMAB
     Dosage: SINGLE INFUSIONS (DAY 1 ONLY) NO PIRS
     Route: 042
     Dates: start: 20200915
  5. METHOTREXATE [Concomitant]
     Active Substance: METHOTREXATE
  6. SYNTHROID [Concomitant]
     Active Substance: LEVOTHYROXINE SODIUM
  7. LOSEC [Concomitant]
     Active Substance: OMEPRAZOLE
  8. FOLIC ACID [Concomitant]
     Active Substance: FOLIC ACID
  9. WARFARIN [Concomitant]
     Active Substance: WARFARIN
  10. ACETAMINOPHEN [Concomitant]
     Active Substance: ACETAMINOPHEN
     Indication: Premedication
     Route: 048
     Dates: start: 20140212
  11. METHYLPREDNISOLONE [Concomitant]
     Active Substance: METHYLPREDNISOLONE
     Indication: Premedication
     Route: 042
     Dates: start: 20140212
  12. DIPHENHYDRAMINE [Concomitant]
     Active Substance: DIPHENHYDRAMINE
     Indication: Premedication
     Route: 048
     Dates: start: 20140212
  13. ERGOCALCIFEROL [Concomitant]
     Active Substance: ERGOCALCIFEROL

REACTIONS (14)
  - Blood pressure increased [Not Recovered/Not Resolved]
  - Sinus congestion [Not Recovered/Not Resolved]
  - Epistaxis [Not Recovered/Not Resolved]
  - Infusion related reaction [Unknown]
  - Weight increased [Recovering/Resolving]
  - Abdominal pain upper [Not Recovered/Not Resolved]
  - Mass [Unknown]
  - Dehydration [Unknown]
  - Poor venous access [Unknown]
  - Impaired healing [Unknown]
  - Blood pressure fluctuation [Unknown]
  - Rash [Unknown]
  - Lung disorder [Unknown]
  - Arthralgia [Unknown]

NARRATIVE: CASE EVENT DATE: 20140212
